FAERS Safety Report 10415218 (Version 3)
Quarter: 2014Q3

REPORT INFORMATION
  Report Type: Spontaneous
  Country: US (occurrence: US)
  Receive Date: 20140828
  Receipt Date: 20140903
  Transmission Date: 20150326
  Serious: Yes (Hospitalization, Other)
  Sender: FDA-Public Use
  Company Number: US-AMGEN-USASP2014060999

PATIENT
  Age: 58 Year
  Sex: Female

DRUGS (2)
  1. PROLIA [Suspect]
     Active Substance: DENOSUMAB
     Indication: OSTEOPOROSIS POSTMENOPAUSAL
     Dosage: UNK
     Route: 065
     Dates: start: 20140722
  2. VITAMIN D                          /00107901/ [Concomitant]
     Active Substance: ERGOCALCIFEROL
     Dosage: UNK
     Route: 065

REACTIONS (11)
  - Paraesthesia [Not Recovered/Not Resolved]
  - Hypoaesthesia oral [Recovering/Resolving]
  - Nausea [Unknown]
  - Feeling hot [Unknown]
  - Hyperhidrosis [Unknown]
  - Malaise [Unknown]
  - Arthropathy [Unknown]
  - Blood calcium decreased [Unknown]
  - Neuropathy peripheral [Unknown]
  - Renal disorder [Unknown]
  - Paraesthesia oral [Not Recovered/Not Resolved]
